FAERS Safety Report 8917465 (Version 1)
Quarter: 2012Q4

REPORT INFORMATION
  Report Type: 
  Country: US (occurrence: US)
  Receive Date: 20121119
  Receipt Date: 20121119
  Transmission Date: 20130627
  Serious: Yes (Hospitalization)
  Sender: FDA-Public Use
  Company Number: US-GILEAD-2012-0064792

PATIENT
  Age: 65 Year
  Sex: Female

DRUGS (3)
  1. LETAIRIS [Suspect]
     Indication: COR PULMONALE CHRONIC
     Dosage: 10 mg, QD
     Route: 048
     Dates: start: 20120622
  2. REVATIO [Concomitant]
  3. REMODULIN [Concomitant]

REACTIONS (4)
  - Pyrexia [Unknown]
  - Pneumonia [Unknown]
  - Device related infection [Unknown]
  - Transplant [Unknown]
